FAERS Safety Report 5622596-4 (Version None)
Quarter: 2008Q1

REPORT INFORMATION
  Report Type: 
  Country: None (occurrence: None)
  Receive Date: 20080211
  Receipt Date: 20080211
  Transmission Date: 20080703
  Serious: Yes (Other)
  Sender: FDA-Public Use
  Company Number: None

PATIENT
  Age: 70 Year
  Sex: Male

DRUGS (2)
  1. REVLIMID [Suspect]
     Indication: MULTIPLE MYELOMA
     Dosage: 25MG PO DAILY
     Route: 048
  2. DECADRON [Concomitant]

REACTIONS (4)
  - FLUSHING [None]
  - PAIN OF SKIN [None]
  - RASH GENERALISED [None]
  - SWELLING FACE [None]
